FAERS Safety Report 23523951 (Version 1)
Quarter: 2024Q1

REPORT INFORMATION
  Report Type: Spontaneous
  Country: FR (occurrence: FR)
  Receive Date: 20240214
  Receipt Date: 20240214
  Transmission Date: 20240410
  Serious: Yes (Death, Hospitalization, Other)
  Sender: FDA-Public Use
  Company Number: None

PATIENT
  Age: 77 Year
  Sex: Female
  Weight: 46 kg

DRUGS (2)
  1. YERVOY [Suspect]
     Active Substance: IPILIMUMAB
     Indication: Metastatic malignant melanoma
     Route: 042
     Dates: start: 20240112, end: 20240112
  2. OPDIVO [Suspect]
     Active Substance: NIVOLUMAB
     Indication: Metastatic malignant melanoma
     Route: 042
     Dates: start: 20240112, end: 20240112

REACTIONS (6)
  - Multiple organ dysfunction syndrome [Fatal]
  - Acute kidney injury [Fatal]
  - Cognitive disorder [Fatal]
  - Hepatitis [Fatal]
  - Troponin T increased [Fatal]
  - Off label use [Unknown]

NARRATIVE: CASE EVENT DATE: 20240131
